FAERS Safety Report 14934575 (Version 1)
Quarter: 2018Q2

REPORT INFORMATION
  Report Type: Spontaneous
  Country: IT (occurrence: IT)
  Receive Date: 20180524
  Receipt Date: 20180524
  Transmission Date: 20180711
  Serious: Yes (Hospitalization)
  Sender: FDA-Public Use
  Company Number: IT-TEVA-2018-IT-897092

PATIENT
  Age: 65 Year
  Sex: Female

DRUGS (2)
  1. OLANZAPINE TEVA [Suspect]
     Active Substance: OLANZAPINE
     Dosage: ONE TABLET IN THE EVENING
  2. ANAFRANIL [Concomitant]
     Active Substance: CLOMIPRAMINE HYDROCHLORIDE
     Dosage: SATURDAY AND SUNDAY

REACTIONS (3)
  - Head banging [Unknown]
  - Fall [Unknown]
  - Head injury [Unknown]
